FAERS Safety Report 7437972-7 (Version None)
Quarter: 2011Q2

REPORT INFORMATION
  Report Type: 
  Country: None (occurrence: None)
  Receive Date: 20110426
  Receipt Date: 20110412
  Transmission Date: 20111010
  Serious: Yes (Other)
  Sender: FDA-Public Use
  Company Number: US-JNJFOC-20110405047

PATIENT
  Sex: Female
  Weight: 63.5 kg

DRUGS (7)
  1. REMICADE [Suspect]
     Indication: COLITIS ULCERATIVE
     Route: 042
  2. FISH OIL [Concomitant]
     Indication: NUTRITIONAL SUPPORT
     Route: 048
  3. CHONDROITIN SULFATE W/GLUCOSAMINE [Concomitant]
     Indication: NUTRITIONAL SUPPORT
  4. IRON [Concomitant]
     Indication: NUTRITIONAL SUPPORT
     Route: 048
  5. FLEXERIL [Suspect]
     Indication: INTERVERTEBRAL DISC PROTRUSION
  6. VALTREX [Concomitant]
     Indication: HERPES VIRUS INFECTION
     Route: 048
  7. ASACOL [Concomitant]
     Indication: COLITIS ULCERATIVE
     Route: 048

REACTIONS (8)
  - NAUSEA [None]
  - PYREXIA [None]
  - PAIN [None]
  - MYALGIA [None]
  - INFLUENZA LIKE ILLNESS [None]
  - ALOPECIA [None]
  - ABNORMAL LOSS OF WEIGHT [None]
  - VOMITING [None]
